FAERS Safety Report 4921164-7 (Version None)
Quarter: 2006Q1

REPORT INFORMATION
  Report Type: 
  Country: None (occurrence: None)
  Receive Date: 20060217
  Receipt Date: 20060209
  Transmission Date: 20060701
  Serious: Yes (Other)
  Sender: FDA-Public Use
  Company Number: 221981

PATIENT
  Age: 66 Year
  Sex: Female

DRUGS (12)
  1. RITUXAN(RITUXIMAB) CONC FOR SOLUTION FOR INFUSION [Suspect]
     Indication: LYMPHOMA
     Dosage: 375 MG/M2,INTRAVENOUS
     Route: 042
     Dates: start: 20050512, end: 20051018
  2. DOXORUBICIN HCL [Suspect]
     Indication: LYMPHOMA
     Dosage: 70 MG, INTRAVENOUS
     Route: 042
     Dates: start: 20050422, end: 20050916
  3. CYCLOPHOSPHAMIDE [Suspect]
     Indication: LYMPHOMA
     Dosage: 1000 MG
     Dates: start: 20050422, end: 20050916
  4. VINCRISTINE [Suspect]
     Indication: LYMPHOMA
     Dosage: 1.9 MG, INTRAVENOUS
     Route: 042
     Dates: start: 20050422, end: 20050916
  5. ACETAMINOPHEN [Concomitant]
  6. CHLORPHENIRAMINE MALEATE [Concomitant]
  7. RANITIDINE [Concomitant]
  8. TEPRENONE (TEPRENONE) [Concomitant]
  9. AMPHOTERICIN B [Concomitant]
  10. SULFAMETHOXAZOLE ET TRIMETHOPRIM (SULFAMETHOXAZOLE, TRIMETHOPRIM) [Concomitant]
  11. ALFACALCIDOL (ALFACALCIDOL) [Concomitant]
  12. PREDNISOLONE [Suspect]
     Indication: LYMPHOMA
     Dosage: 100 MG ORAL
     Route: 048
     Dates: start: 20050422, end: 20050920

REACTIONS (1)
  - NEUTROPHIL COUNT DECREASED [None]
